FAERS Safety Report 16177645 (Version 4)
Quarter: 2019Q3

REPORT INFORMATION
  Report Type: Spontaneous
  Country: DE (occurrence: DE)
  Receive Date: 20190410
  Receipt Date: 20190926
  Transmission Date: 20191004
  Serious: Yes (Hospitalization, Other)
  Sender: FDA-Public Use
  Company Number: DE-AUROBINDO-AUR-APL-2019-016515

PATIENT
  Age: 46 Year
  Sex: Male
  Weight: 102 kg

DRUGS (4)
  1. LEVOFLOXACIN AUROBINDO FILM-COATED TABLETS 500MG [Suspect]
     Active Substance: LEVOFLOXACIN
     Indication: PROSTATITIS
     Dosage: 500 MILLIGRAM, ONCE A DAY IN THE MORNING
     Route: 048
     Dates: start: 20180504, end: 20180509
  2. ALFUZOSIN [Concomitant]
     Active Substance: ALFUZOSIN
     Indication: PRODUCT USED FOR UNKNOWN INDICATION
     Dosage: 1 DOSAGE FORM, DAILYIN THE EVENING
     Route: 065
  3. LEVOFLOXACIN AUROBINDO FILM-COATED TABLETS 500MG [Suspect]
     Active Substance: LEVOFLOXACIN
     Dosage: 500 MILLIGRAM, DAILY (ONE TABLET ONCE A DAY IN THE MORNING)
     Route: 048
     Dates: start: 20180504, end: 20180508
  4. OMEPRAZOL [Concomitant]
     Active Substance: OMEPRAZOLE
     Indication: PRODUCT USED FOR UNKNOWN INDICATION
     Dosage: 20 MILLIGRAM, DAILY IN THE MORNING
     Route: 065

REACTIONS (39)
  - Muscle twitching [Not Recovered/Not Resolved]
  - Hypoaesthesia [Unknown]
  - Nervousness [Unknown]
  - Auditory disorder [Not Recovered/Not Resolved]
  - Chest discomfort [Unknown]
  - Confusional state [Not Recovered/Not Resolved]
  - Paraesthesia [Unknown]
  - Apathy [Unknown]
  - Arthralgia [Not Recovered/Not Resolved]
  - Asthenia [Not Recovered/Not Resolved]
  - Myalgia [Not Recovered/Not Resolved]
  - Initial insomnia [Not Recovered/Not Resolved]
  - Hyperhidrosis [Unknown]
  - Tinnitus [Recovered/Resolved]
  - Restlessness [Not Recovered/Not Resolved]
  - Adverse reaction [Not Recovered/Not Resolved]
  - Malaise [Unknown]
  - Palpitations [Unknown]
  - Sense of oppression [Unknown]
  - Dizziness [Not Recovered/Not Resolved]
  - Heart rate increased [Unknown]
  - Disturbance in attention [Not Recovered/Not Resolved]
  - Chest pain [Not Recovered/Not Resolved]
  - Back pain [Recovering/Resolving]
  - Depression [Not Recovered/Not Resolved]
  - Muscle spasms [Not Recovered/Not Resolved]
  - Gait disturbance [Not Recovered/Not Resolved]
  - Panic attack [Not Recovered/Not Resolved]
  - Tendon pain [Not Recovered/Not Resolved]
  - Hot flush [Unknown]
  - Drug ineffective [Unknown]
  - Blood pressure abnormal [Unknown]
  - Pain in extremity [Not Recovered/Not Resolved]
  - Somnolence [Unknown]
  - Sleep disorder [Not Recovered/Not Resolved]
  - Vertigo [Unknown]
  - Anxiety [Not Recovered/Not Resolved]
  - Joint noise [Not Recovered/Not Resolved]
  - Visual impairment [Not Recovered/Not Resolved]

NARRATIVE: CASE EVENT DATE: 2018
